FAERS Safety Report 21214909 (Version 3)
Quarter: 2023Q1

REPORT INFORMATION
  Report Type: Spontaneous
  Country: US (occurrence: US)
  Receive Date: 20220816
  Receipt Date: 20230224
  Transmission Date: 20230417
  Serious: No
  Sender: FDA-Public Use
  Company Number: US-BRISTOL-MYERS SQUIBB COMPANY-2022-090023

PATIENT
  Age: 75 Year
  Sex: Male

DRUGS (2)
  1. REVLIMID [Suspect]
     Active Substance: LENALIDOMIDE
     Indication: Plasma cell myeloma
     Dosage: 1 CAPSULE (25 MILLIGRAM) EVERY DAY
     Route: 048
     Dates: start: 20220613
  2. REVLIMID [Suspect]
     Active Substance: LENALIDOMIDE
     Dosage: WITH WATER FOR 21 DAYS THEN OFF FOR 7 DAYS. DO NOT BREAK, CHEW OR OPEN
     Route: 048

REACTIONS (1)
  - Sinusitis [Unknown]
